FAERS Safety Report 13607451 (Version 2)
Quarter: 2017Q2

REPORT INFORMATION
  Report Type: Spontaneous
  Country: JP (occurrence: JP)
  Receive Date: 20170602
  Receipt Date: 20170607
  Transmission Date: 20170830
  Serious: Yes (Life-Threatening, Other)
  Sender: FDA-Public Use
  Company Number: PHHY2017JP078120

PATIENT
  Sex: Female

DRUGS (1)
  1. CICLOSPORIN [Suspect]
     Active Substance: CYCLOSPORINE
     Indication: FOETAL EXPOSURE DURING PREGNANCY
     Route: 064

REACTIONS (6)
  - Tachypnoea [Recovered/Resolved]
  - Foetal exposure during pregnancy [Unknown]
  - Hepatosplenomegaly [Recovered/Resolved]
  - Pancytopenia [Recovered/Resolved]
  - Familial haemophagocytic lymphohistiocytosis [Recovered/Resolved]
  - Premature baby [Unknown]
